FAERS Safety Report 6976792-4 (Version None)
Quarter: 2010Q3

REPORT INFORMATION
  Report Type: 
  Country: None (occurrence: None)
  Receive Date: 20100910
  Receipt Date: 20100907
  Transmission Date: 20110219
  Serious: Yes (Other)
  Sender: FDA-Public Use
  Company Number: PHHO2010IL13469

PATIENT
  Sex: Male
  Weight: 65 kg

DRUGS (4)
  1. BLINDED ACZ885 ACZ+ [Suspect]
     Indication: JUVENILE ARTHRITIS
     Dosage: CODE NOT BROKEN
     Route: 058
     Dates: start: 20100810
  2. BLINDED NO TREATMENT RECEIVED NOMED [Suspect]
     Indication: JUVENILE ARTHRITIS
     Dosage: CODE NOT BROKEN
     Route: 058
     Dates: start: 20100810
  3. BLINDED PLACEBO COMP-PLA+ [Suspect]
     Indication: JUVENILE ARTHRITIS
     Dosage: CODE NOT BROKEN
     Route: 058
     Dates: start: 20100810
  4. AMOXICILLIN [Suspect]

REACTIONS (8)
  - BRONCHOPNEUMONIA [None]
  - COUGH [None]
  - HEPATITIS VIRAL [None]
  - LEUKOPENIA [None]
  - NEUTROPENIA [None]
  - PRURITUS [None]
  - PYREXIA [None]
  - RASH MACULO-PAPULAR [None]
